FAERS Safety Report 21618015 (Version 1)
Quarter: 2022Q4

REPORT INFORMATION
  Report Type: Spontaneous
  Country: PT (occurrence: PT)
  Receive Date: 20221119
  Receipt Date: 20221119
  Transmission Date: 20230113
  Serious: Yes (Hospitalization, Other)
  Sender: FDA-Public Use
  Company Number: PT-Accord-286972

PATIENT
  Age: 74 Year
  Sex: Female

DRUGS (1)
  1. DAPTOMYCIN [Suspect]
     Active Substance: DAPTOMYCIN
     Indication: Endocarditis
     Dosage: RESUMED FOR THE TREATMENT OF IE AND DISCONTINUED

REACTIONS (1)
  - Nephrogenic diabetes insipidus [Recovered/Resolved]
